FAERS Safety Report 21830225 (Version 1)
Quarter: 2023Q1

REPORT INFORMATION
  Report Type: Spontaneous
  Country: US (occurrence: US)
  Receive Date: 20230106
  Receipt Date: 20230106
  Transmission Date: 20230417
  Serious: Yes (Other)
  Sender: FDA-Public Use
  Company Number: US-UNITED THERAPEUTICS-UNT-2022-031337

PATIENT
  Age: 55 Year
  Sex: Male
  Weight: 88.889 kg

DRUGS (4)
  1. REMODULIN [Suspect]
     Active Substance: TREPROSTINIL
     Indication: Pulmonary arterial hypertension
     Dosage: 0.010 ?G/KG (SELF-FILL CASSETTE WITH 2.1 ML, AT PUMP RATE 22 MCL/HOUR), CONTINUING
     Route: 058
     Dates: start: 20221215
  2. UPTRAVI [Concomitant]
     Active Substance: SELEXIPAG
     Indication: Product used for unknown indication
     Dosage: UNK
     Route: 065
     Dates: end: 202212
  3. TADALAFIL [Concomitant]
     Active Substance: TADALAFIL
     Indication: Product used for unknown indication
     Dosage: UNK
     Route: 065
  4. LETAIRIS [Concomitant]
     Active Substance: AMBRISENTAN
     Indication: Product used for unknown indication
     Dosage: UNK
     Route: 065

REACTIONS (17)
  - Scleroderma [Unknown]
  - Device leakage [Recovered/Resolved]
  - Device wireless communication issue [Recovered/Resolved]
  - Device issue [Recovered/Resolved]
  - Device issue [Unknown]
  - Device wireless communication issue [Unknown]
  - Device breakage [Unknown]
  - Device leakage [Unknown]
  - Wrong technique in device usage process [Unknown]
  - Peripheral swelling [Unknown]
  - Pain in extremity [Unknown]
  - Skin discharge [Unknown]
  - Device wireless communication issue [Not Recovered/Not Resolved]
  - Device wireless communication issue [Not Recovered/Not Resolved]
  - Device issue [Unknown]
  - Device issue [Unknown]
  - Device issue [Unknown]

NARRATIVE: CASE EVENT DATE: 20221201
